FAERS Safety Report 6801176-9 (Version None)
Quarter: 2010Q2

REPORT INFORMATION
  Report Type: 
  Country: None (occurrence: None)
  Receive Date: 20100624
  Receipt Date: 20100615
  Transmission Date: 20101027
  Serious: Yes (Other)
  Sender: FDA-Public Use
  Company Number: 013904

PATIENT
  Sex: Male

DRUGS (1)
  1. ISOKET (ISOKET SPRAY) [Suspect]
     Dosage: (UP TO 40 SPRAY SCHOCKS PER DAY)

REACTIONS (1)
  - DRUG ABUSE [None]
